FAERS Safety Report 4883063-9 (Version None)
Quarter: 2006Q1

REPORT INFORMATION
  Report Type: 
  Country: None (occurrence: None)
  Receive Date: 20060118
  Receipt Date: 20060111
  Transmission Date: 20060701
  Serious: Yes (Hospitalization)
  Sender: FDA-Public Use
  Company Number: US-BRISTOL-MYERS SQUIBB COMPANY-13244249

PATIENT
  Sex: Male
  Weight: 69 kg

DRUGS (3)
  1. CETUXIMAB [Suspect]
     Indication: COLORECTAL CANCER METASTATIC
     Dosage: 824 MG WEEKLY,INITIATED 17-AUG-2005.
     Route: 042
     Dates: start: 20060104, end: 20060104
  2. CAPECITABINE [Suspect]
     Indication: COLORECTAL CANCER METASTATIC
     Dosage: GIVEN DAILY DAY 1-14 EVERY 3 WEEKS, THERAPY INITIATED 17-AUG-2005.
     Route: 042
     Dates: start: 20060110, end: 20060110
  3. IRINOTECAN HCL [Suspect]
     Indication: COLORECTAL CANCER METASTATIC
     Dosage: THERAPY INITIATED 17-AUG-2005-ADMINISTERED EVERY 3 WEEKS.
     Route: 042
     Dates: start: 20060104, end: 20060104

REACTIONS (1)
  - INTESTINAL OBSTRUCTION [None]
